FAERS Safety Report 26188675 (Version 1)
Quarter: 2025Q4

REPORT INFORMATION
  Report Type: Spontaneous
  Country: US (occurrence: US)
  Receive Date: 20251222
  Receipt Date: 20251222
  Transmission Date: 20260117
  Serious: No
  Sender: CELLTRION
  Company Number: US-CELLTRION INC.-2025US020806

PATIENT

DRUGS (25)
  1. RITUXIMAB [Suspect]
     Active Substance: RITUXIMAB
     Indication: Diffuse large B-cell lymphoma stage IV
     Dosage: HYPER-CVAD
     Dates: start: 20210724
  2. RITUXIMAB [Suspect]
     Active Substance: RITUXIMAB
     Dosage: SALVAGE THERAPY (R-GDP)
     Dates: start: 20220307
  3. RITUXIMAB [Suspect]
     Active Substance: RITUXIMAB
     Dosage: POLA-BR
     Dates: start: 20221223
  4. CYCLOPHOSPHAMIDE [Suspect]
     Active Substance: CYCLOPHOSPHAMIDE
     Indication: Diffuse large B-cell lymphoma stage IV
     Dosage: HYPERFRACTIONATED (HYPER-CVAD)
     Dates: start: 20210724
  5. CYCLOPHOSPHAMIDE [Suspect]
     Active Substance: CYCLOPHOSPHAMIDE
     Dosage: TRANSITIONED TO DA-EPOCH
  6. CYCLOPHOSPHAMIDE [Suspect]
     Active Substance: CYCLOPHOSPHAMIDE
     Dosage: COMPLETED CYCLE 6COMPLETED CYCLE 6 (DA-EPOCH)
     Dates: end: 20211123
  7. VINCRISTINE [Suspect]
     Active Substance: VINCRISTINE
     Indication: Diffuse large B-cell lymphoma stage IV
     Dosage: HYPER-CVAD
     Dates: start: 20210724
  8. VINCRISTINE [Suspect]
     Active Substance: VINCRISTINE
     Dosage: TRANSITIONED TO DA-EPOCH
  9. VINCRISTINE [Suspect]
     Active Substance: VINCRISTINE
     Dosage: COMPLETED CYCLE 6 (DA-EPOCH)
     Dates: end: 20211123
  10. DOXORUBICIN [Suspect]
     Active Substance: DOXORUBICIN
     Indication: Diffuse large B-cell lymphoma stage IV
     Dosage: HYPER-CVAD
     Dates: start: 20210724
  11. DOXORUBICIN [Suspect]
     Active Substance: DOXORUBICIN
     Dosage: TRANSITIONED TO DA-EPOCH
  12. DOXORUBICIN [Suspect]
     Active Substance: DOXORUBICIN
     Dosage: COMPLETED CYCLE 6 (DA-EPOCH)
     Dates: end: 20211123
  13. DEXAMETHASONE [Suspect]
     Active Substance: DEXAMETHASONE
     Indication: Diffuse large B-cell lymphoma stage IV
     Dosage: HYPER-CVAD
     Dates: start: 20210724
  14. DEXAMETHASONE [Suspect]
     Active Substance: DEXAMETHASONE
     Dosage: SALVAGE THERAPY (R-GDP)
     Dates: start: 20220307
  15. ETOPOSIDE [Suspect]
     Active Substance: ETOPOSIDE
     Indication: Diffuse large B-cell lymphoma stage IV
     Dosage: TRANSITIONED TO DA-EPOCH
  16. ETOPOSIDE [Suspect]
     Active Substance: ETOPOSIDE
     Dosage: COMPLETED CYCLE 6 (DA-EPOCH)
     Dates: end: 20211123
  17. PREDNISONE [Suspect]
     Active Substance: PREDNISONE
     Indication: Diffuse large B-cell lymphoma stage IV
     Dosage: TRANSITIONED TO DA-EPOCH
  18. PREDNISONE [Suspect]
     Active Substance: PREDNISONE
     Dosage: COMPLETED CYCLE 6 (DA-EPOCH)
     Dates: end: 20211123
  19. METHOTREXATE [Suspect]
     Active Substance: METHOTREXATE
     Indication: Diffuse large B-cell lymphoma stage IV
     Dosage: HIGH DOSE, 3 CYCLES
  20. GEMCITABINE [Suspect]
     Active Substance: GEMCITABINE
     Indication: Diffuse large B-cell lymphoma stage IV
     Dosage: SALVAGE THERAPY (R-GDP)
     Dates: start: 20220307
  21. CISPLATIN [Suspect]
     Active Substance: CISPLATIN
     Indication: Diffuse large B-cell lymphoma stage IV
     Dosage: SALVAGE THERAPY (R-GDP)
     Dates: start: 20220307
  22. TAFASITAMAB-CXIX [Suspect]
     Active Substance: TAFASITAMAB-CXIX
     Indication: Diffuse large B-cell lymphoma stage IV
     Dosage: SALVAGE THERAPY
     Dates: start: 20221205
  23. LENALIDOMIDE [Suspect]
     Active Substance: LENALIDOMIDE
     Indication: Diffuse large B-cell lymphoma stage IV
     Dosage: SALVAGE THERAPY
     Dates: start: 20221205
  24. POLATUZUMAB VEDOTIN [Suspect]
     Active Substance: POLATUZUMAB VEDOTIN
     Indication: Diffuse large B-cell lymphoma stage IV
     Dosage: POLA-BR
     Dates: start: 20221223
  25. BENDAMUSTINE [Suspect]
     Active Substance: BENDAMUSTINE
     Indication: Diffuse large B-cell lymphoma stage IV
     Dosage: POLA-BR
     Dates: start: 20221223

REACTIONS (2)
  - Product use issue [Unknown]
  - Therapeutic product effect incomplete [Unknown]
